FAERS Safety Report 18024975 (Version 2)
Quarter: 2021Q1

REPORT INFORMATION
  Report Type: Other
  Country: CA (occurrence: CA)
  Receive Date: 20200715
  Receipt Date: 20210112
  Transmission Date: 20210419
  Serious: Yes (Other)
  Sender: FDA-Public Use
  Company Number: CA-ACCORD-190333

PATIENT
  Age: 3 Month
  Sex: Male

DRUGS (7)
  1. FLUDARABINE/FLUDARABINE PHOSPHATE [Suspect]
     Active Substance: FLUDARABINE PHOSPHATE
     Indication: BRAIN SARCOMA
  2. ETOPOSIDE. [Suspect]
     Active Substance: ETOPOSIDE
     Indication: CHLOROMA
  3. CYTARABINE/CYTARABINE HYDROCHLORIDE/CYTARABINE OCFOSFATE [Suspect]
     Active Substance: CYTARABINE
     Indication: BRAIN SARCOMA
     Dosage: SOLUTION INTRATHECAL
     Route: 037
  4. ASPARAGINASE [Suspect]
     Active Substance: ASPARAGINASE
     Indication: CHLOROMA
     Dosage: POWDER FOR SOLUTION INTRAMUSCULAR
  5. METHOTREXATE. [Suspect]
     Active Substance: METHOTREXATE
     Indication: BRAIN SARCOMA
  6. DAUNORUBICIN [Suspect]
     Active Substance: DAUNORUBICIN
     Indication: CHLOROMA
  7. HYDROCORTISONE. [Suspect]
     Active Substance: HYDROCORTISONE
     Indication: BRAIN SARCOMA

REACTIONS (9)
  - Septic shock [Unknown]
  - Brain sarcoma [Unknown]
  - General physical health deterioration [Unknown]
  - Infection [Unknown]
  - Off label use [Unknown]
  - Cerebellar tumour [Unknown]
  - Hydrocephalus [Unknown]
  - Pyrexia [Unknown]
  - Leukaemia recurrent [Unknown]
